FAERS Safety Report 6594099-4 (Version None)
Quarter: 2010Q1

REPORT INFORMATION
  Report Type: 
  Country: None (occurrence: None)
  Receive Date: 20100218
  Receipt Date: 20100218
  Transmission Date: 20100710
  Serious: Yes (Hospitalization)
  Sender: FDA-Public Use
  Company Number: None

PATIENT
  Age: 47 Year
  Sex: Male
  Weight: 98.4 kg

DRUGS (2)
  1. NAPROXEN [Suspect]
     Dosage: 500 MG BID PO; 10 MG QID PO
     Route: 048
     Dates: start: 20091024, end: 20091026
  2. NAPROXEN [Suspect]
     Dosage: 500 MG BID PO; 10 MG QID PO
     Route: 048
     Dates: start: 20091024, end: 20091026

REACTIONS (1)
  - ANGIOEDEMA [None]
